FAERS Safety Report 6955759-6 (Version None)
Quarter: 2010Q3

REPORT INFORMATION
  Report Type: 
  Country: None (occurrence: None)
  Receive Date: 20100830
  Receipt Date: 20100702
  Transmission Date: 20110219
  Serious: Yes (Other)
  Sender: FDA-Public Use
  Company Number: US-AMGEN-QUU419518

PATIENT
  Sex: Female
  Weight: 66.6 kg

DRUGS (2)
  1. NPLATE [Suspect]
     Indication: IDIOPATHIC THROMBOCYTOPENIC PURPURA
     Route: 058
     Dates: start: 20091207, end: 20100222
  2. NPLATE [Suspect]
     Indication: THROMBOCYTOPENIA

REACTIONS (1)
  - DRUG INEFFECTIVE [None]
